FAERS Safety Report 5345800-9 (Version None)
Quarter: 2007Q2

REPORT INFORMATION
  Report Type: 
  Country: None (occurrence: None)
  Receive Date: 20070426
  Receipt Date: 20060922
  Transmission Date: 20071010
  Serious: Yes (Other)
  Sender: FDA-Public Use
  Company Number: US-JNJFOC-20060905642

PATIENT

DRUGS (3)
  1. TRAMADOL HCL [Suspect]
     Indication: NEURALGIA
     Dosage: 300 MG
  2. WELLBUTRIN [Suspect]
     Indication: DRUG USE FOR UNKNOWN INDICATION
     Dosage: 450 MG, 1 IN 1 DAY, ORAL
     Route: 048
  3. ANTI-CONVULSANT (NOS) (ALL OTHER THERAPEUTIC PRODUCTS) [Concomitant]

REACTIONS (2)
  - CONVULSION [None]
  - DRUG INTERACTION [None]
